FAERS Safety Report 7966846 (Version 8)
Quarter: 2013Q3

REPORT INFORMATION
  Report Type: Spontaneous
  Country: US (occurrence: US)
  Receive Date: 20110531
  Receipt Date: 20130709
  Transmission Date: 20140515
  Serious: Yes (Hospitalization, Disabling, Other)
  Sender: FDA-Public Use
  Company Number: US-ROCHE-760623

PATIENT
  Age: 16 Year
  Sex: Male
  Weight: 68 kg

DRUGS (2)
  1. ACCUTANE [Suspect]
     Indication: ACNE
     Route: 065
     Dates: start: 19951013, end: 199605
  2. ACCUTANE [Suspect]
     Route: 065

REACTIONS (13)
  - Crohn^s disease [Unknown]
  - Ileal perforation [Unknown]
  - Small intestinal obstruction [Unknown]
  - Depression [Unknown]
  - Colitis ulcerative [Unknown]
  - Crohn^s disease [Unknown]
  - Inflammatory bowel disease [Unknown]
  - Anal fistula [Unknown]
  - Drug hypersensitivity [Unknown]
  - Fracture [Unknown]
  - Nail infection [Unknown]
  - Avulsion fracture [Unknown]
  - Rash [Unknown]
